FAERS Safety Report 23751585 (Version 1)
Quarter: 2024Q2

REPORT INFORMATION
  Report Type: Spontaneous
  Country: US (occurrence: US)
  Receive Date: 20240417
  Receipt Date: 20240417
  Transmission Date: 20240716
  Serious: Yes (Other)
  Sender: FDA-Public Use
  Company Number: US-PFIZER INC-PV202400048560

PATIENT
  Age: 59 Year
  Sex: Female

DRUGS (7)
  1. ERYTHROMYCIN [Suspect]
     Active Substance: ERYTHROMYCIN
     Dosage: UNK
  2. GABAPENTIN [Suspect]
     Active Substance: GABAPENTIN
     Dosage: UNK
  3. TORADOL [Suspect]
     Active Substance: KETOROLAC TROMETHAMINE
     Dosage: UNK
  4. AUGMENTIN [Suspect]
     Active Substance: AMOXICILLIN\CLAVULANATE POTASSIUM
     Dosage: UNK
  5. ABILIFY [Suspect]
     Active Substance: ARIPIPRAZOLE
     Dosage: UNK
  6. OXYCODONE HYDROCHLORIDE [Suspect]
     Active Substance: OXYCODONE HYDROCHLORIDE
     Dosage: UNK
  7. OXYCONTIN [Suspect]
     Active Substance: OXYCODONE HYDROCHLORIDE
     Dosage: UNK

REACTIONS (3)
  - Drug hypersensitivity [Unknown]
  - Respiratory distress [Unknown]
  - Urticaria [Unknown]
